FAERS Safety Report 4899868-4 (Version None)
Quarter: 2006Q1

REPORT INFORMATION
  Report Type: 
  Country: None (occurrence: None)
  Receive Date: 20060118
  Receipt Date: 20050722
  Transmission Date: 20060701
  Serious: No
  Sender: FDA-Public Use
  Company Number: 2005001438

PATIENT
  Age: 75 Year
  Sex: Female
  Weight: 58.514 kg

DRUGS (4)
  1. TARCEVA [Suspect]
     Indication: NON-SMALL CELL LUNG CANCER
     Dosage: 175 MG (QD), ORAL; 150 MG (QD),ORAL; 125 MG (QD), ORAL
     Route: 048
     Dates: end: 20050801
  2. TARCEVA [Suspect]
     Indication: NON-SMALL CELL LUNG CANCER
     Dosage: 175 MG (QD), ORAL; 150 MG (QD),ORAL; 125 MG (QD), ORAL
     Route: 048
     Dates: start: 20050601
  3. TARCEVA [Suspect]
     Indication: NON-SMALL CELL LUNG CANCER
     Dosage: 175 MG (QD), ORAL; 150 MG (QD),ORAL; 125 MG (QD), ORAL
     Route: 048
     Dates: start: 20050801
  4. AMIODARONE HCL [Concomitant]

REACTIONS (12)
  - ALOPECIA [None]
  - DIARRHOEA [None]
  - DRY SKIN [None]
  - ERYTHEMA [None]
  - EYE IRRITATION [None]
  - HIRSUTISM [None]
  - NAIL DISORDER [None]
  - NAUSEA [None]
  - OCULAR HYPERAEMIA [None]
  - RASH [None]
  - SKIN FISSURES [None]
  - URINARY TRACT INFECTION [None]
